FAERS Safety Report 9888637 (Version 1)
Quarter: 2014Q1

REPORT INFORMATION
  Report Type: Spontaneous
  Country: US (occurrence: None)
  Receive Date: 20140207
  Receipt Date: 20140207
  Transmission Date: 20141002
  Serious: Yes (Death)
  Sender: FDA-Public Use
  Company Number: SYM-2014-16164

PATIENT
  Age: 60 Year
  Sex: Male

DRUGS (1)
  1. SALICYLATE (SALICYLATES NOS) [Suspect]
     Indication: PRODUCT USED FOR UNKNOWN INDICATION
     Route: 048

REACTIONS (13)
  - Poisoning [None]
  - Completed suicide [None]
  - Blood pressure systolic increased [None]
  - Tinnitus [None]
  - Tremor [None]
  - Blood sodium increased [None]
  - Heart rate increased [None]
  - Incorrect dose administered [None]
  - Exposure via ingestion [None]
  - Blood pH increased [None]
  - PCO2 decreased [None]
  - PO2 decreased [None]
  - Respiratory rate increased [None]
